FAERS Safety Report 9393052 (Version 1)
Quarter: 2013Q3

REPORT INFORMATION
  Report Type: Spontaneous
  Country: US (occurrence: US)
  Receive Date: 20130710
  Receipt Date: 20130710
  Transmission Date: 20140515
  Serious: No
  Sender: FDA-Public Use
  Company Number: US-B.I. PHARMACEUTICALS,INC./RIDGEFIELD-2013-BI-19660BP

PATIENT
  Age: 76 Year
  Sex: Male

DRUGS (9)
  1. COMBIVENT [Suspect]
     Indication: CHRONIC OBSTRUCTIVE PULMONARY DISEASE
     Dosage: STRENGTH: 18 MCG / 103 MCG; DAILY DOSE: 144 MCG/
     Route: 055
     Dates: start: 20130704
  2. ADVAIR [Concomitant]
     Dosage: STRENGTH: 500/50;
     Route: 055
  3. ASPIRIN [Concomitant]
     Dosage: 81 MG
     Route: 048
  4. PROZAC [Concomitant]
     Dosage: 20 MG
     Route: 048
  5. ZOLPIDEM [Concomitant]
     Route: 048
  6. PROBIOTIC [Concomitant]
     Route: 048
  7. THEOPYLLLINE [Concomitant]
     Route: 048
  8. WELCHOL [Concomitant]
     Dosage: 625 MG
     Route: 048
  9. CARTIA [Concomitant]
     Dosage: 180 MG
     Route: 048

REACTIONS (2)
  - Drug ineffective [Not Recovered/Not Resolved]
  - Dyspnoea [Not Recovered/Not Resolved]
